FAERS Safety Report 15598974 (Version 2)
Quarter: 2019Q1

REPORT INFORMATION
  Report Type: Report from Study
  Country: US (occurrence: US)
  Receive Date: 20181108
  Receipt Date: 20190330
  Transmission Date: 20190417
  Serious: Yes (Hospitalization, Other)
  Sender: FDA-Public Use
  Company Number: US-TAKEDA-2018TUS031702

PATIENT
  Age: 27 Year
  Sex: Female

DRUGS (2)
  1. VEDOLIZUMAB [Suspect]
     Active Substance: VEDOLIZUMAB
     Indication: CROHN^S DISEASE
     Dosage: 300 MILLIGRAM
     Route: 042
     Dates: start: 201805
  2. VEDOLIZUMAB [Suspect]
     Active Substance: VEDOLIZUMAB
     Dosage: 300 MILLIGRAM, Q4WEEKS
     Route: 042
     Dates: start: 201811

REACTIONS (5)
  - Haemorrhoids [Not Recovered/Not Resolved]
  - Off label use [Unknown]
  - Crohn^s disease [Unknown]
  - Colostomy [Unknown]
  - Anal skin tags [Not Recovered/Not Resolved]

NARRATIVE: CASE EVENT DATE: 201811
